FAERS Safety Report 16407998 (Version 1)
Quarter: 2019Q2

REPORT INFORMATION
  Report Type: Spontaneous
  Country: DE (occurrence: DE)
  Receive Date: 20190610
  Receipt Date: 20190610
  Transmission Date: 20190711
  Serious: Yes (Hospitalization)
  Sender: FDA-Public Use
  Company Number: DE-EMD SERONO-E2B_90068401

PATIENT
  Age: 38 Year
  Sex: Female

DRUGS (5)
  1. PROGESTAN [Suspect]
     Active Substance: PROGESTERONE
     Indication: ASSISTED REPRODUCTIVE TECHNOLOGY
     Dates: start: 20190505
  2. MENOGON HP [Suspect]
     Active Substance: MENOTROPINS
     Indication: ASSISTED REPRODUCTIVE TECHNOLOGY
     Dates: start: 20190422, end: 20190425
  3. ORGALUTRAN [Suspect]
     Active Substance: GANIRELIX ACETATE
     Indication: ASSISTED REPRODUCTIVE TECHNOLOGY
     Dates: start: 20190426, end: 20190501
  4. MENOGON HP [Suspect]
     Active Substance: MENOTROPINS
     Dates: start: 20190426, end: 20190501
  5. OVITRELLE [Suspect]
     Active Substance: CHORIOGONADOTROPIN ALFA
     Indication: ASSISTED REPRODUCTIVE TECHNOLOGY
     Dates: start: 20190502

REACTIONS (1)
  - Salpingo-oophoritis [Unknown]

NARRATIVE: CASE EVENT DATE: 20190508
